FAERS Safety Report 11284245 (Version 1)
Quarter: 2015Q3

REPORT INFORMATION
  Report Type: Spontaneous
  Country: GB (occurrence: GB)
  Receive Date: 20150720
  Receipt Date: 20150720
  Transmission Date: 20151125
  Serious: Yes (Hospitalization, Other)
  Sender: FDA-Public Use
  Company Number: GB-TEVA-577831ACC

PATIENT
  Age: 77 Year
  Sex: Male

DRUGS (12)
  1. CYCLOPHOSPHAMIDE. [Suspect]
     Active Substance: CYCLOPHOSPHAMIDE
     Dosage: 69.5238 MILLIGRAM DAILY; THERAPY TEMPORARILY INTERRUPTED. DOSE FORM : BOLUS
     Route: 042
     Dates: start: 20090220, end: 20090312
  2. PREDNISOLONE. [Suspect]
     Active Substance: PREDNISOLONE
     Indication: B-CELL LYMPHOMA
     Route: 048
  3. MABTHERA [Suspect]
     Active Substance: RITUXIMAB
     Indication: DIFFUSE LARGE B-CELL LYMPHOMA
     Dosage: 34.7619 MILLIGRAM DAILY;
     Route: 042
  4. PLACEBO [Suspect]
     Active Substance: UNSPECIFIED INGREDIENT
     Indication: DIFFUSE LARGE B-CELL LYMPHOMA
     Dosage: THERAPY TEMPORARILY INTERRUPTED,FORM:INFUSION. DATE OF LAST DOSE PRIOR TO SAE: 19 FEB 2009
     Route: 042
     Dates: start: 20090219, end: 20090312
  5. VINCRISTINE [Suspect]
     Active Substance: VINCRISTINE
     Indication: B-CELL LYMPHOMA
     Dosage: .0667 MG/M2 DAILY;
     Route: 042
  6. MABTHERA [Suspect]
     Active Substance: RITUXIMAB
     Route: 042
     Dates: start: 20090220, end: 20090312
  7. ALLOPURINOL. [Concomitant]
     Active Substance: ALLOPURINOL
     Route: 065
     Dates: start: 20090218, end: 20090313
  8. DOXORUBICIN [Suspect]
     Active Substance: DOXORUBICIN
     Dosage: 4.6667 MILLIGRAM DAILY; FORM:BOLUS, THERAPY TEMPORARIY INTERRUPTED.
     Route: 042
     Dates: start: 20090220, end: 20090312
  9. PREDNISOLONE. [Suspect]
     Active Substance: PREDNISOLONE
     Dosage: FREQUENCY:DAYS 1TO 5 EVERY 21 DAYS, LAST DOSE PRIOR TO SAE : 24 FEB 2009, TEMPORARILY INTERRUPTED
     Route: 048
     Dates: start: 20090220, end: 20090312
  10. CYCLOPHOSPHAMIDE. [Suspect]
     Active Substance: CYCLOPHOSPHAMIDE
     Indication: B-CELL LYMPHOMA
     Route: 042
  11. DOXORUBICIN [Suspect]
     Active Substance: DOXORUBICIN
     Indication: B-CELL LYMPHOMA
     Route: 042
  12. PLACEBO [Suspect]
     Active Substance: UNSPECIFIED INGREDIENT
     Route: 042
     Dates: start: 20090320

REACTIONS (2)
  - Escherichia sepsis [Recovered/Resolved]
  - Urinary tract infection [Unknown]

NARRATIVE: CASE EVENT DATE: 20090308
